FAERS Safety Report 14967034 (Version 1)
Quarter: 2018Q3

REPORT INFORMATION
  Report Type: Report from Study
  Country: CN (occurrence: CN)
  Receive Date: 20180604
  Receipt Date: 20180604
  Transmission Date: 20181010
  Serious: Yes (Death, Life-Threatening, Other)
  Sender: FDA-Public Use
  Company Number: CN-CHEPLA-C20170280_B

PATIENT

DRUGS (12)
  1. DEXAMETHASONE. [Suspect]
     Active Substance: DEXAMETHASONE
     Indication: ACUTE PROMYELOCYTIC LEUKAEMIA
     Dosage: CONSOLIDATION: AT LEAST THREE INTRATHECAL INJECTIONS
     Route: 037
  2. ALL?TRANS RETINOIC ACID (ATRA) [Suspect]
     Active Substance: TRETINOIN
     Indication: ACUTE PROMYELOCYTIC LEUKAEMIA
     Dosage: MAINTENANCE: EIGHT 3?MONTHLY CYCLES, DAYS 1?14 OF EACH CYCLE
     Route: 048
  3. ARSENIC TRIOXIDE (AS2O3) [Suspect]
     Active Substance: ARSENIC TRIOXIDE
     Indication: ACUTE PROMYELOCYTIC LEUKAEMIA
     Dosage: REMISSION INDUCTION THERAPY: 0.16 MG/KG/DAY, DAYS 1?28
     Route: 042
  4. ALL?TRANS RETINOIC ACID (ATRA) [Suspect]
     Active Substance: TRETINOIN
     Indication: ACUTE PROMYELOCYTIC LEUKAEMIA
     Dosage: CONSOLIDATION:  25 MG/M2/DAY 4 CYCLES OF 14 DAYS EACH
     Route: 048
  5. MITOXANTRONE [Suspect]
     Active Substance: MITOXANTRONE HYDROCHLORIDE
     Indication: ACUTE PROMYELOCYTIC LEUKAEMIA
     Dosage: CONSOLIDATION CYCLES 2 AND THREE: 6 MG/M2/DAY, DAYS 1?3
     Route: 042
  6. 6?MERCAPTOPURINE [Suspect]
     Active Substance: MERCAPTOPURINE
     Indication: ACUTE PROMYELOCYTIC LEUKAEMIA
     Dosage: MAINTENANCE: EIGHT 3?MONTHLY CYCLES; FOR THE REMAINDER OF EACH CYCLE
     Route: 048
  7. ALL?TRANS RETINOIC ACID (ATRA) [Suspect]
     Active Substance: TRETINOIN
     Indication: ACUTE PROMYELOCYTIC LEUKAEMIA
     Dosage: REMISSION INDUCTION THERAPY: 25 MG/M2/DAY DAY 1 UNTIL COMPLETE REMISSION
     Route: 048
  8. IDARUBICIN [Suspect]
     Active Substance: IDARUBICIN
     Indication: ACUTE PROMYELOCYTIC LEUKAEMIA
     Dosage: REMISSION INDUCTION THERAPY: 10?12 MG/M2/DAY (DAYS 2, 4, AND 6)
     Route: 042
  9. MTX [Suspect]
     Active Substance: METHOTREXATE SODIUM
     Indication: ACUTE PROMYELOCYTIC LEUKAEMIA
     Dosage: CONSOLIDATION: AT LEAST THREE INTRATHECAL INJECTIONS
     Route: 037
  10. MTX [Suspect]
     Active Substance: METHOTREXATE SODIUM
     Indication: ACUTE PROMYELOCYTIC LEUKAEMIA
     Dosage: MAINTENANCE: EIGHT 3?MONTHLY CYCLES; 10?15 MG/M2/WEEK FOR THE REMAINDER OF EACH CYCLE
     Route: 048
  11. IDARUBICIN [Suspect]
     Active Substance: IDARUBICIN
     Indication: ACUTE PROMYELOCYTIC LEUKAEMIA
     Dosage: CONSOLIDATION: 10?12 MG/M2/DAY, FIRST AND 4TH CYCLE, DAYS 1?3
     Route: 042
  12. CYTARABINE. [Suspect]
     Active Substance: CYTARABINE
     Indication: ACUTE PROMYELOCYTIC LEUKAEMIA
     Dosage: CONSOLIDATION: AT LEAST THREE INTRATHECAL INJECTIONS
     Route: 037

REACTIONS (6)
  - Hepatic function abnormal [Recovering/Resolving]
  - Neutropenia [Unknown]
  - Dyspepsia [Recovering/Resolving]
  - Leukaemia recurrent [Recovered/Resolved]
  - Death [Fatal]
  - Herpes zoster [Recovered/Resolved]
